FAERS Safety Report 4798960-2 (Version None)
Quarter: 2005Q4

REPORT INFORMATION
  Report Type: 
  Country: None (occurrence: None)
  Receive Date: 20051011
  Receipt Date: 20050926
  Transmission Date: 20060501
  Serious: Yes (Other)
  Sender: FDA-Public Use
  Company Number: MK200509-0304-1

PATIENT
  Age: 41 Year
  Sex: Male

DRUGS (3)
  1. METHADOSE [Suspect]
     Indication: DEPENDENCE
     Dosage: 600 MG QD
  2. FLUOXETINE [Suspect]
  3. PHENYTOIN [Concomitant]

REACTIONS (1)
  - TORSADE DE POINTES [None]
